FAERS Safety Report 10434691 (Version 1)
Quarter: 2014Q2

REPORT INFORMATION
  Report Type: Spontaneous
  Country: US (occurrence: None)
  Receive Date: 20140514
  Receipt Date: 20140514
  Transmission Date: 20141212
  Serious: Yes (Other)
  Sender: FDA-Public Use
  Company Number: 082121U

PATIENT
  Sex: Female

DRUGS (1)
  1. CIMZIA [Suspect]
     Indication: CROHN^S DISEASE
     Dosage: EXP DATE: NOV-2015
     Dates: start: 20090406, end: 201311

REACTIONS (3)
  - Anal fistula [None]
  - Sinusitis [None]
  - Dental caries [None]
